FAERS Safety Report 15251419 (Version 1)
Quarter: 2018Q3

REPORT INFORMATION
  Report Type: Report from Study
  Country: FR (occurrence: FR)
  Receive Date: 20180807
  Receipt Date: 20180807
  Transmission Date: 20181010
  Serious: Yes (Life-Threatening, Hospitalization)
  Sender: FDA-Public Use
  Company Number: FR-ASTRAZENECA-2018SE90792

PATIENT
  Age: 22365 Day
  Sex: Female

DRUGS (1)
  1. DURVALUMAB. [Suspect]
     Active Substance: DURVALUMAB
     Indication: LUNG ADENOCARCINOMA
     Dosage: 540.0MG EVERY CYCLE
     Route: 042
     Dates: start: 20180202, end: 20180216

REACTIONS (5)
  - Bronchitis [Recovering/Resolving]
  - Lung disorder [Unknown]
  - Cough [Recovering/Resolving]
  - Respiratory distress [Recovered/Resolved]
  - Dyspnoea [Recovering/Resolving]

NARRATIVE: CASE EVENT DATE: 20180220
